FAERS Safety Report 5645266-5 (Version None)
Quarter: 2008Q1

REPORT INFORMATION
  Report Type: 
  Country: None (occurrence: None)
  Receive Date: 20080229
  Receipt Date: 20080229
  Transmission Date: 20080703
  Serious: Yes (Other)
  Sender: FDA-Public Use
  Company Number: A0712658A

PATIENT
  Age: 44 Year
  Sex: Female
  Weight: 83.2 kg

DRUGS (4)
  1. ALLI [Suspect]
     Indication: WEIGHT LOSS DIET
     Route: 048
  2. VICODIN [Concomitant]
  3. SOMA [Concomitant]
  4. VALIUM [Concomitant]

REACTIONS (7)
  - CRYING [None]
  - DYSSTASIA [None]
  - HEPATIC LESION [None]
  - NAUSEA [None]
  - PAIN [None]
  - PHARMACEUTICAL PRODUCT COMPLAINT [None]
  - VOMITING [None]
